FAERS Safety Report 8089234-5 (Version None)
Quarter: 2012Q1

REPORT INFORMATION
  Report Type: 
  Country: None (occurrence: None)
  Receive Date: 20120128
  Receipt Date: 20110707
  Transmission Date: 20120608
  Serious: No
  Sender: FDA-Public Use
  Company Number: US-ABBOTT-11P-163-0837693-00

PATIENT
  Sex: Female
  Weight: 47.67 kg

DRUGS (2)
  1. HUMIRA [Suspect]
     Indication: PSORIASIS
     Dates: start: 20100901, end: 20110501
  2. BIRTH CONTROL MEDICATION [Concomitant]
     Indication: CONTRACEPTION

REACTIONS (3)
  - PSORIASIS [None]
  - YELLOW SKIN [None]
  - INAPPROPRIATE SCHEDULE OF DRUG ADMINISTRATION [None]
